FAERS Safety Report 19374320 (Version 1)
Quarter: 2021Q2

REPORT INFORMATION
  Report Type: Report from Study
  Country: CO (occurrence: CO)
  Receive Date: 20210603
  Receipt Date: 20210603
  Transmission Date: 20210717
  Serious: Yes (Other)
  Sender: FDA-Public Use
  Company Number: CO-JNJFOC-20210554032

PATIENT
  Age: 53 Year
  Sex: Male
  Weight: 70 kg

DRUGS (3)
  1. STELARA [Suspect]
     Active Substance: USTEKINUMAB
     Indication: PSORIASIS
     Route: 058
     Dates: start: 20190529
  2. STELARA [Suspect]
     Active Substance: USTEKINUMAB
     Dosage: 45 MG/0.5 ML
     Route: 058
     Dates: start: 20210328
  3. STELARA [Suspect]
     Active Substance: USTEKINUMAB
     Dosage: 45 MG/0.5 ML
     Route: 058
     Dates: start: 20200207

REACTIONS (7)
  - Illness [Recovered/Resolved]
  - Decreased appetite [Not Recovered/Not Resolved]
  - Vomiting [Not Recovered/Not Resolved]
  - Diarrhoea [Not Recovered/Not Resolved]
  - Influenza [Not Recovered/Not Resolved]
  - Depressed mood [Recovered/Resolved]
  - Psoriasis [Unknown]

NARRATIVE: CASE EVENT DATE: 2021
